FAERS Safety Report 9432951 (Version 1)
Quarter: 2013Q3

REPORT INFORMATION
  Report Type: Spontaneous
  Country: GB (occurrence: None)
  Receive Date: 20130729
  Receipt Date: 20130729
  Transmission Date: 20140515
  Serious: Yes (Disabling)
  Sender: FDA-Public Use
  Company Number: AUR-APL-2013-06204

PATIENT
  Age: 73 Year
  Sex: Female
  Weight: 83 kg

DRUGS (11)
  1. ALENDRONIC ACID [Suspect]
     Indication: OSTEOPOROSIS POSTMENOPAUSAL
     Route: 048
     Dates: start: 20060904, end: 20120918
  2. AMLODIPINE (AMLODIPINE) [Concomitant]
  3. ASPIRIN (ACEYTLSALICYLIC ACID) [Concomitant]
  4. ATORVASTATIN (ATORVASTATIN) [Concomitant]
  5. CALCICHEW D3 (LEKOVIT CA) [Concomitant]
  6. FERROUS FUMARATE (FERROUS FUMARATE) [Concomitant]
  7. FUROSEMIDE (FUROSEMIDE) [Concomitant]
  8. GLICLAZIDE (GLICLAZIDE) [Concomitant]
  9. METFORMIN (METFORMIN) [Concomitant]
  10. OMPERAZOLE (OMEPRAZOLE) [Concomitant]
  11. TRAMADOL (TRAMADOL) [Concomitant]

REACTIONS (3)
  - Mobility decreased [None]
  - Arthralgia [None]
  - Stress fracture [None]
